FAERS Safety Report 5721782-2 (Version None)
Quarter: 2008Q2

REPORT INFORMATION
  Report Type: 
  Country: None (occurrence: None)
  Receive Date: 20080429
  Receipt Date: 20080422
  Transmission Date: 20081010
  Serious: Yes (Other)
  Sender: FDA-Public Use
  Company Number: KR-ROCHE-560547

PATIENT
  Age: 52 Year
  Sex: Male

DRUGS (2)
  1. GANCICLOVIR SODIUM [Suspect]
     Route: 042
  2. GANCICLOVIR SODIUM [Suspect]
     Route: 042

REACTIONS (1)
  - RETINAL INFARCTION [None]
